FAERS Safety Report 7642469-5 (Version None)
Quarter: 2011Q3

REPORT INFORMATION
  Report Type: 
  Country: None (occurrence: None)
  Receive Date: 20110722
  Receipt Date: 20110708
  Transmission Date: 20111222
  Serious: Yes (Life-Threatening)
  Sender: FDA-Public Use
  Company Number: 7069444

PATIENT
  Age: 46 Year
  Sex: Male

DRUGS (1)
  1. LEVOTHYROXINE SODIUM [Suspect]
     Indication: THYROID HORMONE REPLACEMENT THERAPY
     Dosage: 50 MG (50 MG, 1 IN 1 D)
     Dates: start: 20110215, end: 20110219

REACTIONS (5)
  - HYPERTENSIVE CRISIS [None]
  - ANGINA PECTORIS [None]
  - TACHYCARDIA [None]
  - AGGRESSION [None]
  - DYSPNOEA EXERTIONAL [None]
